FAERS Safety Report 12772571 (Version 2)
Quarter: 2016Q3

REPORT INFORMATION
  Report Type: Spontaneous
  Country: DK (occurrence: DK)
  Receive Date: 20160922
  Receipt Date: 20160928
  Transmission Date: 20161109
  Serious: Yes (Other)
  Sender: FDA-Public Use
  Company Number: DK-BRISTOL-MYERS SQUIBB COMPANY-BMS-2016-076402

PATIENT
  Sex: Female
  Weight: 91 kg

DRUGS (23)
  1. ARIPIPRAZOLE. [Suspect]
     Active Substance: ARIPIPRAZOLE
     Indication: MENTAL DISORDER
     Dosage: UNK
     Route: 065
     Dates: start: 200806
  2. NIZORAL [Concomitant]
     Active Substance: KETOCONAZOLE
     Indication: PRODUCT USED FOR UNKNOWN INDICATION
     Route: 065
  3. DEPO-MEDROL [Concomitant]
     Active Substance: METHYLPREDNISOLONE ACETATE
     Indication: PRODUCT USED FOR UNKNOWN INDICATION
     Route: 065
  4. SEROQUEL [Concomitant]
     Active Substance: QUETIAPINE FUMARATE
     Dosage: UNK
     Route: 048
     Dates: start: 200909
  5. TRUXAL                             /00012101/ [Concomitant]
     Active Substance: CHLORPROTHIXENE
     Indication: MENTAL DISORDER
     Dosage: UNK
     Route: 048
     Dates: start: 200805
  6. CANESTEN [Concomitant]
     Active Substance: CLOTRIMAZOLE
     Indication: PRODUCT USED FOR UNKNOWN INDICATION
     Route: 065
  7. DOLOL                              /00020001/ [Concomitant]
     Active Substance: ACETAMINOPHEN
     Indication: PRODUCT USED FOR UNKNOWN INDICATION
     Route: 065
  8. SOLIAN [Concomitant]
     Active Substance: AMISULPRIDE
     Indication: MENTAL DISORDER
     Dosage: UNK
     Route: 048
     Dates: start: 201107
  9. DEPO-PROVERA [Concomitant]
     Active Substance: MEDROXYPROGESTERONE ACETATE
     Indication: PRODUCT USED FOR UNKNOWN INDICATION
     Route: 065
  10. CIPRALEX [Concomitant]
     Active Substance: ESCITALOPRAM OXALATE
     Indication: DEPRESSION
     Dosage: UNK
     Route: 048
     Dates: start: 2008, end: 2011
  11. CIRCADIN [Concomitant]
     Active Substance: MELATONIN
     Indication: MENTAL DISORDER
     Dosage: UNK
     Route: 048
     Dates: start: 201112, end: 201112
  12. PULMICORT TURBUHALER [Concomitant]
     Active Substance: BUDESONIDE
     Indication: PRODUCT USED FOR UNKNOWN INDICATION
     Route: 065
  13. CETIRIZIN [Concomitant]
     Active Substance: CETIRIZINE HYDROCHLORIDE
     Indication: PRODUCT USED FOR UNKNOWN INDICATION
     Route: 065
  14. FEXOFENADINE [Concomitant]
     Active Substance: FEXOFENADINE\FEXOFENADINE HYDROCHLORIDE
     Indication: PRODUCT USED FOR UNKNOWN INDICATION
     Route: 065
  15. LYRICA [Concomitant]
     Active Substance: PREGABALIN
     Indication: MENTAL DISORDER
     Dosage: UNK
     Route: 048
     Dates: start: 2011, end: 2011
  16. VENLAFAXIN [Concomitant]
     Active Substance: VENLAFAXINE HYDROCHLORIDE
     Indication: MENTAL DISORDER
     Dosage: UNK
     Route: 048
     Dates: start: 2011
  17. BRENTAN                            /00310801/ [Concomitant]
     Active Substance: MICONAZOLE
     Indication: PRODUCT USED FOR UNKNOWN INDICATION
     Route: 065
  18. SERDOLECT [Concomitant]
     Active Substance: SERTINDOLE
     Indication: MENTAL DISORDER
     Dosage: UNK
     Route: 048
     Dates: start: 200909
  19. SERETIDE [Concomitant]
     Active Substance: FLUTICASONE PROPIONATE\SALMETEROL XINAFOATE
     Indication: PRODUCT USED FOR UNKNOWN INDICATION
     Route: 065
  20. ZYPREXA [Concomitant]
     Active Substance: OLANZAPINE
     Indication: MENTAL DISORDER
     Dosage: UNK
     Route: 048
     Dates: start: 200805
  21. TRADOLAN [Concomitant]
     Active Substance: TRAMADOL
     Indication: PRODUCT USED FOR UNKNOWN INDICATION
     Route: 065
  22. SEROQUEL [Concomitant]
     Active Substance: QUETIAPINE FUMARATE
     Indication: MENTAL DISORDER
     Dosage: UNK
     Route: 048
     Dates: start: 200805
  23. BRICANYL [Concomitant]
     Active Substance: TERBUTALINE SULFATE
     Indication: PRODUCT USED FOR UNKNOWN INDICATION
     Route: 065

REACTIONS (32)
  - Sleep paralysis [Recovering/Resolving]
  - Dizziness [Recovering/Resolving]
  - Nausea [Recovering/Resolving]
  - Depressed mood [Recovering/Resolving]
  - Pneumonia [Recovering/Resolving]
  - Asthenia [Recovering/Resolving]
  - Hallucination [Recovering/Resolving]
  - Nightmare [Recovering/Resolving]
  - Personality disorder [Recovering/Resolving]
  - Disinhibition [Recovering/Resolving]
  - Weight fluctuation [Recovering/Resolving]
  - Otitis media [Recovering/Resolving]
  - Bronchitis [Recovering/Resolving]
  - Irritable bowel syndrome [Recovering/Resolving]
  - Diarrhoea [Recovering/Resolving]
  - Abdominal pain [Recovering/Resolving]
  - Delusion [Recovering/Resolving]
  - Suicidal ideation [Recovering/Resolving]
  - Feeling abnormal [Recovering/Resolving]
  - Aggression [Recovering/Resolving]
  - Immunodeficiency [Recovering/Resolving]
  - Drug ineffective [Unknown]
  - Insomnia [Recovering/Resolving]
  - Anger [Recovering/Resolving]
  - Nasopharyngitis [Recovering/Resolving]
  - Restlessness [Recovering/Resolving]
  - Sleep terror [Recovering/Resolving]
  - Fungal infection [Recovering/Resolving]
  - Sexual dysfunction [Recovering/Resolving]
  - Anxiety [Recovering/Resolving]
  - Somnolence [Recovering/Resolving]
  - Pain [Recovering/Resolving]
